FAERS Safety Report 5350026-9 (Version None)
Quarter: 2007Q2

REPORT INFORMATION
  Report Type: 
  Country: None (occurrence: None)
  Receive Date: 20070510
  Receipt Date: 20061223
  Transmission Date: 20071010
  Serious: Yes (Other)
  Sender: FDA-Public Use
  Company Number: 2006S1000309

PATIENT
  Age: 71 Year
  Sex: Female

DRUGS (10)
  1. CUBICIN [Suspect]
     Indication: AORTIC VALVE DISEASE
     Dosage: 500 MG; IV
     Route: 042
     Dates: start: 20061116
  2. CUBICIN [Suspect]
     Indication: ENDOCARDITIS
     Dosage: 500 MG; IV
     Route: 042
     Dates: start: 20061116
  3. ACETYLSALICYLIC ACID SRT [Concomitant]
  4. WARFARIN SODIUM [Concomitant]
  5. DIGOXIN [Concomitant]
  6. SERTRALINE [Concomitant]
  7. ALBUTEROL [Concomitant]
  8. AMBIEN [Concomitant]
  9. XANAX [Concomitant]
  10. COREG [Concomitant]

REACTIONS (2)
  - CARDIAC FAILURE [None]
  - EJECTION FRACTION DECREASED [None]
